FAERS Safety Report 6021492-0 (Version None)
Quarter: 2008Q4

REPORT INFORMATION
  Report Type: 
  Country: None (occurrence: None)
  Receive Date: 20081229
  Receipt Date: 20081223
  Transmission Date: 20090506
  Serious: Yes (Other)
  Sender: FDA-Public Use
  Company Number: US-JNJFOC-20081100779

PATIENT
  Age: 85 Year
  Sex: Male
  Weight: 77.11 kg

DRUGS (9)
  1. EXTRA STRENGTH TYLENOL [Suspect]
     Indication: INSOMNIA
  2. COUMADIN [Concomitant]
     Indication: SICK SINUS SYNDROME
  3. TOPROL-XL [Concomitant]
     Indication: HYPERTENSION
  4. LOVASTATIN [Concomitant]
     Indication: BLOOD CHOLESTEROL INCREASED
  5. LORAZEPAM [Concomitant]
     Indication: ANXIETY
  6. PRILOSEC [Concomitant]
     Indication: GASTROOESOPHAGEAL REFLUX DISEASE
  7. PRILOSEC [Concomitant]
     Indication: DYSPEPSIA
  8. LACTULOSE [Concomitant]
     Indication: CONSTIPATION
  9. SENNA [Concomitant]
     Indication: CONSTIPATION

REACTIONS (5)
  - FEELING ABNORMAL [None]
  - HYPOACUSIS [None]
  - NERVOUSNESS [None]
  - SUICIDAL IDEATION [None]
  - TREMOR [None]
